FAERS Safety Report 18790408 (Version 2)
Quarter: 2021Q2

REPORT INFORMATION
  Report Type: Spontaneous
  Country: JP (occurrence: JP)
  Receive Date: 20210126
  Receipt Date: 20210407
  Transmission Date: 20210717
  Serious: Yes (Hospitalization)
  Sender: FDA-Public Use
  Company Number: JP-009507513-2101JPN002181J

PATIENT
  Age: 79 Year

DRUGS (1)
  1. KEYTRUDA [Suspect]
     Active Substance: PEMBROLIZUMAB
     Indication: LUNG ADENOCARCINOMA STAGE IV
     Dosage: 200 MILLIGRAM, Q3W
     Route: 041
     Dates: start: 20210106, end: 20210106

REACTIONS (1)
  - Liver disorder [Recovered/Resolved]

NARRATIVE: CASE EVENT DATE: 202101
